FAERS Safety Report 12860655 (Version 1)
Quarter: 2016Q4

REPORT INFORMATION
  Report Type: Spontaneous
  Country: US (occurrence: US)
  Receive Date: 20161019
  Receipt Date: 20161019
  Transmission Date: 20170207
  Serious: No
  Sender: FDA-Public Use
  Company Number: US-TEVA-612457USA

PATIENT
  Age: 1 Year
  Sex: Male
  Weight: 10.9 kg

DRUGS (1)
  1. AMOXICILLIN W/CLAVULANIC ACID [Suspect]
     Active Substance: AMOXICILLIN\CLAVULANIC ACID
     Dosage: 600/42.9 MG
     Route: 048
     Dates: start: 20151112, end: 20151119

REACTIONS (2)
  - Urticaria [Recovering/Resolving]
  - Rash [Recovering/Resolving]

NARRATIVE: CASE EVENT DATE: 20151119
